FAERS Safety Report 24162514 (Version 1)
Quarter: 2024Q3

REPORT INFORMATION
  Report Type: Spontaneous
  Country: GB (occurrence: GB)
  Receive Date: 20240801
  Receipt Date: 20240801
  Transmission Date: 20241016
  Serious: Yes (Other)
  Sender: MYLAN
  Company Number: GB-MHRA-TPP3812892C11244065YC1721920642082

PATIENT
  Age: 81 Year
  Sex: Female
  Weight: 77 kg

DRUGS (8)
  1. DOXAZOSIN [Suspect]
     Active Substance: DOXAZOSIN MESYLATE
     Indication: Ill-defined disorder
     Dosage: 2 MILLIGRAM, QD
     Route: 065
     Dates: start: 20240320, end: 20240725
  2. EZETIMIBE [Concomitant]
     Active Substance: EZETIMIBE
     Indication: Ill-defined disorder
     Dosage: 1 DOSAGE FORM, QD (TAKE ONE DAILY)
     Route: 065
     Dates: start: 20230426
  3. LOSARTAN [Concomitant]
     Active Substance: LOSARTAN\LOSARTAN POTASSIUM
     Indication: Ill-defined disorder
     Dosage: 1 DOSAGE FORM, QD
     Route: 065
     Dates: start: 20230928
  4. AMITRIPTYLINE HYDROCHLORIDE [Concomitant]
     Active Substance: AMITRIPTYLINE HYDROCHLORIDE
     Indication: Pain
     Dosage: 2 DOSAGE FORM, PM (TWO TO BE TAKEN EACH NIGHT TO HELP PAIN CONTROL )
     Route: 065
     Dates: start: 20231009
  5. BLINK INTENSIVE TEARS [Concomitant]
     Indication: Ill-defined disorder
     Dosage: UNK UNK, QID (USE IN BOTH EYES 4 TIMES A DAY)
     Route: 065
     Dates: start: 20231009
  6. LERCANIDIPINE HYDROCHLORIDE [Concomitant]
     Active Substance: LERCANIDIPINE HYDROCHLORIDE
     Indication: Ill-defined disorder
     Dosage: 1 DOSAGE FORM, QD (TAKE ONE DAILY)
     Route: 065
     Dates: start: 20231009
  7. ORALIEVE MOISTURISING MOUTH GEL [Concomitant]
     Indication: Ill-defined disorder
     Dosage: UNK (USE AS DIRECTED )
     Route: 065
     Dates: start: 20231009
  8. XAILIN NIGHT [Concomitant]
     Indication: Ill-defined disorder
     Dosage: UNK UNK, PM (APPLY BOTH EYES AT NIGHT )
     Route: 065
     Dates: start: 20231009, end: 20240528

REACTIONS (4)
  - Vision blurred [Unknown]
  - Hot flush [Unknown]
  - Pollakiuria [Unknown]
  - Urticaria [Unknown]

NARRATIVE: CASE EVENT DATE: 20240402
